FAERS Safety Report 23872919 (Version 1)
Quarter: 2024Q2

REPORT INFORMATION
  Report Type: Spontaneous
  Country: PL (occurrence: PL)
  Receive Date: 20240520
  Receipt Date: 20240520
  Transmission Date: 20240715
  Serious: Yes (Other)
  Sender: FDA-Public Use
  Company Number: PL-TAKEDA-2024TUS048511

PATIENT
  Age: 9 Year
  Sex: Male

DRUGS (13)
  1. ANTIHEMOPHILIC FACTOR, HUMAN RECOMBINANT [Suspect]
     Active Substance: ANTIHEMOPHILIC FACTOR, HUMAN RECOMBINANT
     Indication: Haemorrhage prophylaxis
     Dosage: 25 INTERNATIONAL UNIT/KILOGRAM, 1/WEEK
     Route: 065
     Dates: start: 201509
  2. ANTIHEMOPHILIC FACTOR, HUMAN RECOMBINANT [Suspect]
     Active Substance: ANTIHEMOPHILIC FACTOR, HUMAN RECOMBINANT
     Indication: Haemorrhage prophylaxis
     Dosage: 25 INTERNATIONAL UNIT/KILOGRAM, 1/WEEK
     Route: 065
     Dates: start: 201509
  3. ANTIHEMOPHILIC FACTOR, HUMAN RECOMBINANT [Suspect]
     Active Substance: ANTIHEMOPHILIC FACTOR, HUMAN RECOMBINANT
     Indication: Haemorrhage prophylaxis
     Dosage: 25 INTERNATIONAL UNIT/KILOGRAM, 1/WEEK
     Route: 065
     Dates: start: 201509
  4. ANTIHEMOPHILIC FACTOR, HUMAN RECOMBINANT [Suspect]
     Active Substance: ANTIHEMOPHILIC FACTOR, HUMAN RECOMBINANT
     Indication: Immune tolerance induction
     Dosage: 100 INTERNATIONAL UNIT/KILOGRAM, BID
     Route: 065
     Dates: start: 201602
  5. ANTIHEMOPHILIC FACTOR, HUMAN RECOMBINANT [Suspect]
     Active Substance: ANTIHEMOPHILIC FACTOR, HUMAN RECOMBINANT
     Indication: Immune tolerance induction
     Dosage: 100 INTERNATIONAL UNIT/KILOGRAM, BID
     Route: 065
     Dates: start: 201602
  6. ANTIHEMOPHILIC FACTOR, HUMAN RECOMBINANT [Suspect]
     Active Substance: ANTIHEMOPHILIC FACTOR, HUMAN RECOMBINANT
     Indication: Immune tolerance induction
     Dosage: 100 INTERNATIONAL UNIT/KILOGRAM, BID
     Route: 065
     Dates: start: 201602
  7. FEIBA NF [Suspect]
     Active Substance: ANTI-INHIBITOR COAGULANT COMPLEX
     Indication: Haemorrhage prophylaxis
     Dosage: 75 INTERNATIONAL UNIT/KILOGRAM, 3/WEEK
     Route: 065
     Dates: start: 201612
  8. FEIBA NF [Suspect]
     Active Substance: ANTI-INHIBITOR COAGULANT COMPLEX
     Dosage: 100 INTERNATIONAL UNIT/KILOGRAM, QD
     Route: 065
     Dates: start: 201901
  9. EFMOROCTOCOG ALFA [Concomitant]
     Active Substance: EFMOROCTOCOG ALFA
     Indication: Immune tolerance induction
     Dosage: 100 INTERNATIONAL UNIT/KILOGRAM, QD
     Route: 065
     Dates: start: 201702, end: 201710
  10. COAGULATION FACTOR VIIA RECOMBINANT HUMAN [Concomitant]
     Active Substance: COAGULATION FACTOR VIIA RECOMBINANT HUMAN
     Indication: Haemorrhage
     Dosage: UNK
     Route: 065
  11. ANTIHEMOPHILIC FACTOR, HUMAN RECOMBINANT [Concomitant]
     Active Substance: ANTIHEMOPHILIC FACTOR, HUMAN RECOMBINANT
     Indication: Immune tolerance induction
     Dosage: 100 INTERNATIONAL UNIT/KILOGRAM, BID
     Route: 065
     Dates: start: 201710, end: 201901
  12. EMICIZUMAB [Concomitant]
     Active Substance: EMICIZUMAB
     Indication: Haemorrhage prophylaxis
     Dosage: UNK
     Route: 058
     Dates: start: 202003
  13. EMICIZUMAB [Concomitant]
     Active Substance: EMICIZUMAB
     Dosage: UNK, Q2WEEKS
     Route: 058

REACTIONS (2)
  - Drug ineffective [Unknown]
  - Product use issue [Unknown]
